FAERS Safety Report 9805756 (Version 1)
Quarter: 2014Q1

REPORT INFORMATION
  Report Type: Spontaneous
  Country: US (occurrence: None)
  Receive Date: 20140108
  Receipt Date: 20140108
  Transmission Date: 20141002
  Serious: Yes (Other)
  Sender: FDA-Public Use
  Company Number: None

PATIENT
  Age: 53 Year
  Sex: Male
  Weight: 89 kg

DRUGS (1)
  1. LURASIDONE [Suspect]
     Indication: SCHIZOAFFECTIVE DISORDER
     Dosage: 60 MG PM
     Route: 048
     Dates: start: 20131001, end: 20131001

REACTIONS (7)
  - Urticaria [None]
  - Lip swelling [None]
  - Hallucination, auditory [None]
  - Dysphagia [None]
  - Oropharyngeal pain [None]
  - Rash [None]
  - Swollen tongue [None]
